FAERS Safety Report 11452136 (Version 1)
Quarter: 2015Q3

REPORT INFORMATION
  Report Type: Spontaneous
  Country: US (occurrence: US)
  Receive Date: 20150831
  Receipt Date: 20150831
  Transmission Date: 20151125
  Serious: No
  Sender: FDA-Public Use
  Company Number: US-ELI_LILLY_AND_COMPANY-US200907001890

PATIENT
  Age: 18 Year
  Sex: Female

DRUGS (4)
  1. ANTIBIOTICS [Concomitant]
     Active Substance: UNSPECIFIED INGREDIENT
  2. MUSCLE RELAXANTS [Concomitant]
     Active Substance: UNSPECIFIED INGREDIENT
  3. CYMBALTA [Suspect]
     Active Substance: DULOXETINE HYDROCHLORIDE
     Indication: FIBROMYALGIA
     Dosage: 60 MG, DAILY (1/D)
     Route: 048
     Dates: start: 200810
  4. ANALGESICS [Concomitant]
     Active Substance: UNSPECIFIED INGREDIENT

REACTIONS (8)
  - Temporomandibular joint syndrome [Not Recovered/Not Resolved]
  - Malaise [Unknown]
  - Sleep disorder [Unknown]
  - Paraesthesia [Unknown]
  - Tremor [Unknown]
  - Drug ineffective [Not Recovered/Not Resolved]
  - Lyme disease [Recovering/Resolving]
  - Pain in extremity [Unknown]
